FAERS Safety Report 24035910 (Version 2)
Quarter: 2024Q4

REPORT INFORMATION
  Report Type: Report from Study
  Country: IT (occurrence: IT)
  Receive Date: 20240701
  Receipt Date: 20241113
  Transmission Date: 20250114
  Serious: Yes (Other)
  Sender: MYLAN
  Company Number: IT-SANDOZ-SDZ2024IT057012

PATIENT
  Age: 57 Year
  Sex: Female

DRUGS (13)
  1. PREDNISONE [Suspect]
     Active Substance: PREDNISONE
     Indication: Immunosuppressant drug therapy
     Dosage: 1 MILLIGRAM/KILOGRAM, QD
     Route: 065
  2. PREDNISONE [Suspect]
     Active Substance: PREDNISONE
     Indication: Granulomatosis with polyangiitis
     Dosage: 20 MILLIGRAM, QD
     Route: 065
  3. PREDNISONE [Suspect]
     Active Substance: PREDNISONE
     Dosage: 5 MILLIGRAM, QD (AT DAY 60)
     Route: 065
  4. EVEROLIMUS [Suspect]
     Active Substance: EVEROLIMUS
     Indication: Immunosuppressant drug therapy
     Dosage: 1 MILLIGRAM, BID
     Route: 065
  5. METHYLPREDNISOLONE [Suspect]
     Active Substance: METHYLPREDNISOLONE
     Indication: Immunosuppressant drug therapy
     Dosage: 500 MILLIGRAM (500 MG,ON DAY 0)
     Route: 065
  6. METHYLPREDNISOLONE [Suspect]
     Active Substance: METHYLPREDNISOLONE
     Dosage: 125 MILLIGRAM (125 MG DAY 1-2)
     Route: 065
  7. CYCLOSPORINE [Suspect]
     Active Substance: CYCLOSPORINE
     Indication: Immunosuppressant drug therapy
     Dosage: 3 MILLIGRAM/KILOGRAM, QD
     Route: 065
  8. CYCLOSPORINE [Suspect]
     Active Substance: CYCLOSPORINE
     Dosage: 1.5 MILLIGRAM, QD (AT 2 MONTH)
     Route: 065
  9. BASILIXIMAB [Suspect]
     Active Substance: BASILIXIMAB
     Indication: Immunosuppressant drug therapy
     Dosage: 20 MILLIGRAM (20 MG,DAY 0?4)
     Route: 065
  10. CYCLOPHOSPHAMIDE [Suspect]
     Active Substance: CYCLOPHOSPHAMIDE
     Indication: Immunosuppressant drug therapy
     Dosage: 15 MILLIGRAM/KILOGRAM
     Route: 042
  11. CYCLOPHOSPHAMIDE [Suspect]
     Active Substance: CYCLOPHOSPHAMIDE
     Indication: Granulomatosis with polyangiitis
  12. CYCLOPHOSPHAMIDE [Suspect]
     Active Substance: CYCLOPHOSPHAMIDE
     Indication: Immunosuppressant drug therapy
     Dosage: 2 MILLIGRAM/KILOGRAM, QD
     Route: 048
  13. CYCLOPHOSPHAMIDE [Suspect]
     Active Substance: CYCLOPHOSPHAMIDE
     Indication: Granulomatosis with polyangiitis

REACTIONS (1)
  - Renal cell carcinoma [Unknown]
